FAERS Safety Report 5744552-8 (Version None)
Quarter: 2008Q2

REPORT INFORMATION
  Report Type: 
  Country: None (occurrence: None)
  Receive Date: 20080520
  Receipt Date: 20080423
  Transmission Date: 20081010
  Serious: No
  Sender: FDA-Public Use
  Company Number: US-BOEHRINGER INGELHEIM GMBH, GERMANY-2008-BP-06468BP

PATIENT
  Sex: Male

DRUGS (5)
  1. SPIRIVA [Suspect]
     Dates: start: 20070301
  2. ALBUTEROL [Concomitant]
     Indication: DYSPNOEA
  3. ATROVENT [Concomitant]
     Indication: DYSPNOEA
  4. COMBIVENT [Concomitant]
     Indication: DYSPNOEA
  5. OTHER PRESCRIPTION MEDICATION [Concomitant]
     Indication: DYSPNOEA

REACTIONS (1)
  - DRUG HYPERSENSITIVITY [None]
